FAERS Safety Report 4431968-5 (Version None)
Quarter: 2004Q3

REPORT INFORMATION
  Report Type: 
  Country: None (occurrence: None)
  Receive Date: 20040819
  Receipt Date: 20040811
  Transmission Date: 20050211
  Serious: Yes (Life-Threatening)
  Sender: FDA-Public Use
  Company Number: 200410542BNE

PATIENT
  Sex: Female

DRUGS (6)
  1. ASPIRIN [Suspect]
     Indication: MYOCARDIAL ISCHAEMIA
     Dosage: 150 MG, TOTAL DAILY, ORAL
     Route: 048
     Dates: start: 20040714
  2. DOXAZOSIN [Concomitant]
  3. ADALAT CC [Concomitant]
  4. BENDROFLUAZIDE [Concomitant]
  5. ENOXAPARIN SODIUM [Concomitant]
  6. PHYSIOTENS [Concomitant]

REACTIONS (4)
  - DUODENAL ULCER [None]
  - GASTRITIS [None]
  - MELAENA [None]
  - OESOPHAGITIS [None]
